FAERS Safety Report 19841266 (Version 2)
Quarter: 2021Q3

REPORT INFORMATION
  Report Type: Spontaneous
  Country: US (occurrence: US)
  Receive Date: 20210916
  Receipt Date: 20210927
  Transmission Date: 20211014
  Serious: Yes (Other)
  Sender: FDA-Public Use
  Company Number: US-TEVA-2021-US-1952590

PATIENT
  Age: 15 Year
  Sex: Female

DRUGS (4)
  1. IFOSFAMIDE. [Suspect]
     Active Substance: IFOSFAMIDE
     Indication: NUT MIDLINE CARCINOMA
     Dosage: PART OF REGIMEN A AND B
     Route: 065
  2. DOXORUBICIN [Suspect]
     Active Substance: DOXORUBICIN
     Indication: NUT MIDLINE CARCINOMA
     Dosage: PART OF REGIMEN A AND B
     Route: 065
  3. CISPLATIN. [Suspect]
     Active Substance: CISPLATIN
     Indication: NUT MIDLINE CARCINOMA
     Dosage: PART OF REGIMEN B
     Route: 065
  4. VINCRISTINE [Suspect]
     Active Substance: VINCRISTINE
     Indication: NUT MIDLINE CARCINOMA
     Dosage: PART OF REGIMEN A
     Route: 065

REACTIONS (6)
  - Deafness [Recovering/Resolving]
  - Nausea [Unknown]
  - Anaemia [Unknown]
  - Vomiting [Unknown]
  - Weight decreased [Unknown]
  - Thrombocytopenia [Unknown]
